FAERS Safety Report 5207068-3 (Version None)
Quarter: 2007Q1

REPORT INFORMATION
  Report Type: 
  Country: None (occurrence: None)
  Receive Date: 20070112
  Receipt Date: 20070110
  Transmission Date: 20070707
  Serious: Yes (Life-Threatening, Hospitalization)
  Sender: FDA-Public Use
  Company Number: SA-JNJFOC-20061206482

PATIENT
  Age: 65 Year
  Sex: Female

DRUGS (1)
  1. INFLIXIMAB [Suspect]
     Indication: PSORIASIS
     Dosage: 100 MG/VIAL
     Route: 042

REACTIONS (3)
  - CHOLANGITIS [None]
  - SEPSIS [None]
  - URINARY TRACT INFECTION [None]
